FAERS Safety Report 21045298 (Version 2)
Quarter: 2022Q3

REPORT INFORMATION
  Report Type: Report from Study
  Country: CN (occurrence: CN)
  Receive Date: 20220706
  Receipt Date: 20220706
  Transmission Date: 20221026
  Serious: Yes (Other)
  Sender: FDA-Public Use
  Company Number: CN-SUN PHARMACEUTICAL INDUSTRIES LTD-2022R1-343324

PATIENT
  Age: 84 Year
  Sex: Male

DRUGS (4)
  1. DECITABINE [Suspect]
     Active Substance: DECITABINE
     Indication: Chemotherapy
     Dosage: 20 MILLIGRAM/SQ. METER, DAILY (FROM THE FIRST DAY TO THE 5TH DAY)
     Route: 042
  2. CYTARABINE [Concomitant]
     Active Substance: CYTARABINE
     Indication: Chemotherapy
     Dosage: 10 MILLIGRAM/SQ. METER, BID (FROM THE 6TH TO 15TH DAY)
     Route: 058
  3. GRANULOCYTE COLONY-STIMULATING FACTOR NOS [Concomitant]
     Active Substance: GRANULOCYTE COLONY-STIMULATING FACTOR NOS
     Indication: Chemotherapy
     Dosage: 5 MICROGRAM/SQ. METER, DAILY (FROM THE 6TH TO 15TH DAY)
     Route: 058
  4. IDARUBICIN [Concomitant]
     Active Substance: IDARUBICIN
     Indication: Chemotherapy
     Dosage: 5 MILLIGRAM/SQ. METER, DAILY (FROM THE 6TH TO 8TH DAY)
     Route: 042

REACTIONS (2)
  - Vomiting [Unknown]
  - Gastritis [Unknown]
